FAERS Safety Report 6955022-3 (Version None)
Quarter: 2010Q3

REPORT INFORMATION
  Report Type: 
  Country: None (occurrence: None)
  Receive Date: 20100825
  Receipt Date: 20100809
  Transmission Date: 20110219
  Serious: Yes (Other)
  Sender: FDA-Public Use
  Company Number: ACO_01677_2010

PATIENT
  Sex: Female

DRUGS (10)
  1. AMPYRA [Suspect]
     Indication: MULTIPLE SCLEROSIS
     Dosage: 10 MG BID ORAL
     Route: 048
     Dates: start: 20100805, end: 20100807
  2. LASIX [Concomitant]
  3. FOSAMAX [Concomitant]
  4. POTASSIUM [Concomitant]
  5. DARVOCET [Concomitant]
  6. ZOCOR [Concomitant]
  7. AMANTADINE [Concomitant]
  8. METOPROLOL TARTRATE [Concomitant]
  9. FISH OIL [Concomitant]
  10. MULTI-VITAMIN [Concomitant]

REACTIONS (6)
  - CONFUSIONAL STATE [None]
  - CONVULSION [None]
  - DISORIENTATION [None]
  - HYPERVENTILATION [None]
  - RENAL IMPAIRMENT [None]
  - TREMOR [None]
